FAERS Safety Report 8238587-3 (Version None)
Quarter: 2012Q1

REPORT INFORMATION
  Report Type: 
  Country: None (occurrence: None)
  Receive Date: 20120327
  Receipt Date: 20120321
  Transmission Date: 20120608
  Serious: Yes (Hospitalization, Other)
  Sender: FDA-Public Use
  Company Number: US-PFIZER INC-2012074165

PATIENT
  Sex: Male
  Weight: 102 kg

DRUGS (10)
  1. LYRICA [Suspect]
     Indication: HYPOAESTHESIA
  2. GABAPENTIN [Suspect]
     Indication: HYPOAESTHESIA
  3. LYRICA [Suspect]
     Indication: PAIN
  4. GABAPENTIN [Suspect]
     Indication: PARAESTHESIA
  5. CELEXA [Concomitant]
     Indication: DEPRESSION
     Dosage: 20 MG, 2X/DAY
  6. LYRICA [Suspect]
     Indication: NEUROPATHY PERIPHERAL
     Dosage: 75 MG, 3X/DAY
  7. LYRICA [Suspect]
     Indication: FIBROMYALGIA
  8. GABAPENTIN [Suspect]
     Indication: NEUROPATHY PERIPHERAL
     Dosage: 800 MG, 3X/DAY
     Route: 048
  9. GABAPENTIN [Suspect]
     Indication: PAIN
  10. LYRICA [Suspect]
     Indication: BURNING SENSATION

REACTIONS (8)
  - NEUROPATHY PERIPHERAL [None]
  - MIGRAINE [None]
  - INTERVERTEBRAL DISC DEGENERATION [None]
  - HYPOAESTHESIA [None]
  - INTERVERTEBRAL DISC DISORDER [None]
  - PAIN [None]
  - SPINAL DISORDER [None]
  - RESTLESS LEGS SYNDROME [None]
